FAERS Safety Report 6371776-1 (Version None)
Quarter: 2009Q3

REPORT INFORMATION
  Report Type: 
  Country: None (occurrence: None)
  Receive Date: 20090918
  Receipt Date: 20090914
  Transmission Date: 20100115
  Serious: Yes (Hospitalization)
  Sender: FDA-Public Use
  Company Number: 6053987

PATIENT
  Age: 75 Year
  Sex: Male

DRUGS (11)
  1. LEVOTHYROXINE SODIUM [Suspect]
     Indication: HYPOTHYROIDISM
     Dosage: 1 DOSAGE FORMS (1 DOSAGE FORMS, 1 IN 1 D) ORAL
     Route: 048
     Dates: start: 20060101
  2. CARDENSIEL 2.5 MG (2.5 MG, TABLET) (BISOPROLOL) [Suspect]
     Indication: CARDIAC FAILURE
     Dosage: 1 DOSAGE FORMS (1 DOSAGE FORMS, 1 IN 1 D) ORAL
     Route: 048
     Dates: start: 20060101
  3. METFORMIN HCL [Suspect]
     Indication: DIABETES MELLITUS
     Dosage: 2 DOSAGE FORMS (1 FOSAGE FORMS, 2 IN 1 D) ORAL
     Route: 048
     Dates: start: 20060101
  4. AMIODARONE HCL [Suspect]
     Indication: ATRIAL FIBRILLATION
     Dosage: 1 DOSAGE FORMS (1 DOSAGE FORMS, 1 IN 1 D) ORAL
     Route: 048
     Dates: start: 20060101
  5. OMEPRAZOLE [Suspect]
     Indication: DRUG USE FOR UNKNOWN INDICATION
     Dosage: 1 DOSAGE FORMS (1 DOSAGE FORMS, 1 IN 1 D) ORAL
     Route: 048
     Dates: start: 20060101
  6. ROVAMYCINE (SPIRAMYCIN) [Suspect]
     Indication: LUNG DISORDER
     Dates: start: 20090601, end: 20090625
  7. LASILIX SPECIAL (500 MG, TABLET) (FUROSEMIDE) [Suspect]
     Indication: CARDIAC FAILURE
     Dosage: 500 MG THE MORNING, 250 MG THE EVENING (500 MG THE MORNING, 250 MG THE EVENING) ORAL
     Route: 048
     Dates: start: 20060101
  8. PREVISCAN (20 MG, TABLET) (FLUINDIONE) [Suspect]
     Indication: THROMBOSIS PROPHYLAXIS
     Dosage: ORAL
     Route: 048
     Dates: start: 20060101
  9. TRIATEC (5 MG, TABLET) (RAMIPRIL) [Suspect]
     Indication: CARDIAC FAILURE
     Dosage: 2 DOSAGE FORMS (1 DOSAGE FORMS, 2 IN 1 D) ORAL
     Route: 048
     Dates: start: 20060101
  10. LANTUS [Suspect]
     Indication: INSULIN-REQUIRING TYPE 2 DIABETES MELLITUS
     Dosage: SUBCUTANEOUS
     Route: 058
  11. ALDACTONE [Suspect]
     Indication: DRUG USE FOR UNKNOWN INDICATION
     Dosage: ORAL
     Route: 048
     Dates: start: 20060101

REACTIONS (3)
  - LUNG DISORDER [None]
  - PURPURA [None]
  - VASCULITIS [None]
